FAERS Safety Report 6875906-4 (Version None)
Quarter: 2010Q3

REPORT INFORMATION
  Report Type: 
  Country: None (occurrence: None)
  Receive Date: 20100723
  Receipt Date: 20100720
  Transmission Date: 20110219
  Serious: Yes (Other)
  Sender: FDA-Public Use
  Company Number: 2010SP039970

PATIENT

DRUGS (1)
  1. ESLAX (ROCURONIUM BROMIDE / 01245702 / ) [Suspect]
     Indication: NEUROMUSCULAR BLOCKING THERAPY
     Dosage: IV
     Route: 042

REACTIONS (1)
  - NEUROMUSCULAR BLOCK PROLONGED [None]
